FAERS Safety Report 4853476-X (Version None)
Quarter: 2005Q4

REPORT INFORMATION
  Report Type: 
  Country: None (occurrence: None)
  Receive Date: 20051212
  Receipt Date: 20051122
  Transmission Date: 20060501
  Serious: Yes (Hospitalization)
  Sender: FDA-Public Use
  Company Number: DE 050716523

PATIENT
  Age: 33 Year
  Sex: Female

DRUGS (4)
  1. CYMBALTA [Suspect]
     Indication: DEPRESSION
     Dosage: 60 MG, DAILY (1/D), ORAL
     Route: 048
     Dates: start: 20050319, end: 20050722
  2. SEROQUEL [Concomitant]
  3. LIMOVAN               (ZOPICLONE) [Concomitant]
  4. ACETYLSALICYLIC ACID SRT [Concomitant]

REACTIONS (5)
  - ASTHENIA [None]
  - HAEMATOMA [None]
  - HAEMORRHAGE [None]
  - PLATELET DISORDER [None]
  - PRURITUS [None]
